FAERS Safety Report 13050086 (Version 2)
Quarter: 2017Q1

REPORT INFORMATION
  Report Type: Report from Study
  Country: US (occurrence: US)
  Receive Date: 20161221
  Receipt Date: 20170112
  Transmission Date: 20170428
  Serious: Yes (Hospitalization, Other)
  Sender: FDA-Public Use
  Company Number: US-GILEAD-2016-0249753

PATIENT
  Age: 45 Year
  Sex: Male

DRUGS (1)
  1. SOFOSBUVIR W/VELPATASVIR [Suspect]
     Active Substance: SOFOSBUVIR\VELPATASVIR
     Indication: HEPATITIS C
     Dosage: 1 DF, QD
     Route: 048
     Dates: start: 201610, end: 20161209

REACTIONS (6)
  - Suicidal ideation [Recovered/Resolved]
  - Seizure [Unknown]
  - Burns third degree [Recovering/Resolving]
  - Pneumonia [Unknown]
  - Pyromania [Unknown]
  - Haemoptysis [Unknown]

NARRATIVE: CASE EVENT DATE: 20161118
